FAERS Safety Report 24966954 (Version 3)
Quarter: 2025Q2

REPORT INFORMATION
  Report Type: Report from Study
  Country: US (occurrence: US)
  Receive Date: 20250213
  Receipt Date: 20250620
  Transmission Date: 20250716
  Serious: No
  Sender: SUNOVION
  Company Number: US-SMPA-2025SPA001070AA

PATIENT

DRUGS (2)
  1. ORGOVYX [Suspect]
     Active Substance: RELUGOLIX
     Indication: Prostate cancer
     Route: 048
     Dates: start: 20250114, end: 20250114
  2. ORGOVYX [Suspect]
     Active Substance: RELUGOLIX
     Dosage: 120 MG, QD
     Route: 048
     Dates: start: 20250115

REACTIONS (6)
  - Irritability [Unknown]
  - Bladder spasm [Unknown]
  - Dysuria [Unknown]
  - Insomnia [Unknown]
  - Constipation [Unknown]
  - Fatigue [Recovering/Resolving]
